FAERS Safety Report 12936150 (Version 1)
Quarter: 2016Q4

REPORT INFORMATION
  Report Type: Spontaneous
  Country: US (occurrence: US)
  Receive Date: 20161111
  Receipt Date: 20161111
  Transmission Date: 20170207
  Serious: No
  Sender: FDA-Public Use
  Company Number: None

PATIENT
  Age: 53 Year
  Sex: Male
  Weight: 67.95 kg

DRUGS (23)
  1. CAROTENOID COMPLEX [Concomitant]
  2. PROBIOTIC [Concomitant]
     Active Substance: PROBIOTICS NOS
  3. VITAMIN E [Concomitant]
     Active Substance: .ALPHA.-TOCOPHEROL
  4. SELENIUM [Concomitant]
     Active Substance: SELENIUM
  5. VITAMIN C [Concomitant]
     Active Substance: ASCORBIC ACID
  6. ZINC [Concomitant]
     Active Substance: ZINC\ZINC CHLORIDE
  7. COENZYME Q-10 [Concomitant]
  8. MIRTAZAPINE 15 MG [Suspect]
     Active Substance: MIRTAZAPINE
     Indication: DEPRESSION
     Dosage: ?          QUANTITY:30 TABLET(S);?
     Route: 048
     Dates: start: 20161107, end: 20161109
  9. FIBER [Concomitant]
     Active Substance: PSYLLIUM HUSK
  10. FISH OIL [Concomitant]
     Active Substance: FISH OIL
  11. GLUCOSAMINE CHONDROITIN MSM COMPLEX [Concomitant]
  12. SAW PALMETTO [Concomitant]
     Active Substance: SAW PALMETTO
  13. ALPHA LIPOIC ACID [Concomitant]
     Active Substance: .ALPHA.-LIPOIC ACID
  14. ASTRAGALUS [Concomitant]
  15. BLACK CURRENT OIL [Concomitant]
  16. COPPER [Concomitant]
     Active Substance: COPPER
  17. ST JOHN^S WORT [Concomitant]
     Active Substance: ST. JOHN^S WORT
  18. VITAMIN D3 [Concomitant]
     Active Substance: CHOLECALCIFEROL
  19. HYDROCORTISONE. [Concomitant]
     Active Substance: HYDROCORTISONE
  20. CLOBETASOL [Concomitant]
     Active Substance: CLOBETASOL
  21. B-50 [Concomitant]
  22. VITAMIN B COMPLEX [Concomitant]
     Active Substance: CYANOCOBALAMIN\DEXPANTHENOL\NIACINAMIDE\PYRIDOXINE HYDROCHLORIDE\RIBOFLAVIN 5^-PHOSPHATE SODIUM\THIAMINE HYDROCHLORIDE\VITAMIN B COMPLEX
  23. TURMERIC [Concomitant]
     Active Substance: TURMERIC

REACTIONS (6)
  - Sedation [None]
  - Suicidal behaviour [None]
  - Fatigue [None]
  - Restlessness [None]
  - Depression [None]
  - Headache [None]

NARRATIVE: CASE EVENT DATE: 20161108
